FAERS Safety Report 8371442-7 (Version None)
Quarter: 2012Q2

REPORT INFORMATION
  Report Type: 
  Country: None (occurrence: None)
  Receive Date: 20120518
  Receipt Date: 20120509
  Transmission Date: 20120825
  Serious: Yes (Hospitalization)
  Sender: FDA-Public Use
  Company Number: FR-ASTRAZENECA-2012SE30364

PATIENT
  Age: 22666 Day
  Sex: Male

DRUGS (19)
  1. BISOPROLOL FUMARATE [Concomitant]
     Route: 048
  2. DUPHALAC [Concomitant]
     Route: 048
  3. X PREP [Concomitant]
     Route: 048
  4. LASIX [Concomitant]
     Route: 048
  5. ENALAPRIL MALEATE [Concomitant]
     Route: 048
  6. POTASSIUM CHLORIDE [Concomitant]
     Route: 048
  7. NITRODERM [Concomitant]
     Route: 062
  8. AKINETON [Concomitant]
     Route: 048
  9. NOCTAMIDE [Concomitant]
     Route: 048
  10. TADENAN [Concomitant]
  11. CLOZAPINE [Concomitant]
     Route: 048
     Dates: end: 20120221
  12. POLYETHYLENE GLYCOL [Concomitant]
     Route: 048
  13. CHLORURE DE POTASSIUM [Concomitant]
     Route: 048
  14. ESCITALOPRAM [Concomitant]
     Route: 048
  15. ALDACTONE [Concomitant]
     Route: 048
  16. ASPIRIN [Concomitant]
     Route: 048
  17. QUETIAPINE FUMARATE [Suspect]
     Indication: BIPOLAR DISORDER
     Route: 048
     Dates: start: 20120222, end: 20120225
  18. ATORVASTATIN [Concomitant]
     Route: 048
  19. TEGRETOL [Concomitant]
     Route: 048

REACTIONS (5)
  - HYPERTHERMIA [None]
  - NEUROLEPTIC MALIGNANT SYNDROME [None]
  - EXTRAPYRAMIDAL DISORDER [None]
  - CONFUSIONAL STATE [None]
  - BLOOD CREATINE PHOSPHOKINASE INCREASED [None]
